FAERS Safety Report 19779259 (Version 9)
Quarter: 2024Q1

REPORT INFORMATION
  Report Type: Spontaneous
  Country: US (occurrence: US)
  Receive Date: 20210902
  Receipt Date: 20240321
  Transmission Date: 20240410
  Serious: Yes (Other)
  Sender: FDA-Public Use
  Company Number: US-PFIZER INC-2021568201

PATIENT
  Age: 85 Year
  Sex: Female

DRUGS (1)
  1. XELJANZ XR [Suspect]
     Active Substance: TOFACITINIB CITRATE
     Indication: Rheumatoid arthritis
     Dosage: 11 MG, DAILY
     Route: 048
     Dates: start: 202105

REACTIONS (12)
  - Wrist surgery [Unknown]
  - Lower limb fracture [Unknown]
  - Knee operation [Unknown]
  - Fall [Unknown]
  - Product dose omission issue [Unknown]
  - Post procedural complication [Unknown]
  - Hypoaesthesia [Unknown]
  - Lip exfoliation [Recovering/Resolving]
  - Peripheral swelling [Unknown]
  - Muscle spasms [Unknown]
  - Sensitivity to weather change [Unknown]
  - Constipation [Unknown]

NARRATIVE: CASE EVENT DATE: 20231201
